FAERS Safety Report 4407598-8 (Version None)
Quarter: 2004Q3

REPORT INFORMATION
  Report Type: 
  Country: None (occurrence: None)
  Receive Date: 20040726
  Receipt Date: 20040621
  Transmission Date: 20050211
  Serious: Yes (Hospitalization)
  Sender: FDA-Public Use
  Company Number: US-ROCHE-374492

PATIENT
  Age: 75 Year
  Sex: Male

DRUGS (1)
  1. CAPECITABINE [Suspect]
     Indication: RECTAL CANCER
     Dosage: TWICE DAILY MONDAY THROUGH FRIDAY FOR SIX WEEKS
     Route: 048
     Dates: start: 20040407, end: 20040514

REACTIONS (2)
  - DYSURIA [None]
  - INTESTINAL OBSTRUCTION [None]
